FAERS Safety Report 14580745 (Version 1)
Quarter: 2018Q1

REPORT INFORMATION
  Report Type: Spontaneous
  Country: FR (occurrence: FR)
  Receive Date: 20180228
  Receipt Date: 20180228
  Transmission Date: 20180509
  Serious: Yes (Death)
  Sender: FDA-Public Use
  Company Number: FR-TEVA-2018-FR-861654

PATIENT
  Age: 91 Year
  Sex: Female

DRUGS (1)
  1. FENOFIBRATE TEVA SANTE [Suspect]
     Active Substance: FENOFIBRATE
     Route: 065

REACTIONS (3)
  - Weight abnormal [Unknown]
  - Death [Fatal]
  - Gait disturbance [Unknown]
